FAERS Safety Report 8679494 (Version 2)
Quarter: 2012Q4

REPORT INFORMATION
  Report Type: 
  Country: US (occurrence: US)
  Receive Date: 20120724
  Receipt Date: 20121112
  Transmission Date: 20130627
  Serious: Yes (Hospitalization, Other)
  Sender: FDA-Public Use
  Company Number: US-BAYER-2012-073404

PATIENT
  Age: 35 Year
  Sex: Female
  Weight: 63.49 kg

DRUGS (6)
  1. YAZ [Suspect]
     Indication: PREMENSTRUAL SYNDROME
     Dosage: UNK
     Dates: start: 20071126, end: 201001
  2. YAZ [Suspect]
     Indication: ACNE
  3. ZEGERID [Concomitant]
  4. LACTAID [Concomitant]
  5. HYDROCHLOROTHIAZIDE [Concomitant]
  6. GAS X [Concomitant]

REACTIONS (9)
  - Gallbladder injury [None]
  - Cholecystitis chronic [None]
  - Injury [None]
  - Pain [None]
  - Emotional distress [None]
  - General physical health deterioration [None]
  - Anxiety [None]
  - Pain [None]
  - Scar [None]
